FAERS Safety Report 4851296-3 (Version None)
Quarter: 2005Q4

REPORT INFORMATION
  Report Type: 
  Country: None (occurrence: None)
  Receive Date: 20051208
  Receipt Date: 20051116
  Transmission Date: 20060501
  Serious: Yes (Other)
  Sender: FDA-Public Use
  Company Number: US200511001399

PATIENT
  Age: 73 Year
  Sex: Male

DRUGS (1)
  1. HUMULIN L [Suspect]
     Indication: DIABETES MELLITUS
     Dosage: 45 U, OTHER
     Route: 050

REACTIONS (2)
  - CATARACT [None]
  - VITREOUS DETACHMENT [None]
